FAERS Safety Report 12396591 (Version 1)
Quarter: 2016Q2

REPORT INFORMATION
  Report Type: Spontaneous
  Country: US (occurrence: None)
  Receive Date: 20160523
  Receipt Date: 20160523
  Transmission Date: 20160815
  Serious: Yes (Life-Threatening, Hospitalization, Disabling, Other)
  Sender: FDA-Public Use
  Company Number: None

PATIENT
  Age: 60 Year
  Sex: Male
  Weight: 63.05 kg

DRUGS (7)
  1. METHOTETRATE [Concomitant]
  2. LIPITOR [Suspect]
     Active Substance: ATORVASTATIN CALCIUM
     Indication: BLOOD CHOLESTEROL ABNORMAL
     Route: 048
  3. ELONGNORATE [Concomitant]
  4. FOLICE [Concomitant]
  5. IVIG [Concomitant]
     Active Substance: HUMAN IMMUNOGLOBULIN G
  6. VITAMIN D [Concomitant]
     Active Substance: CHOLECALCIFEROL
  7. PREDSIDONE [Concomitant]

REACTIONS (5)
  - Rash erythematous [None]
  - Myalgia [None]
  - Arthralgia [None]
  - Blood creatine phosphokinase increased [None]
  - Impaired work ability [None]
